FAERS Safety Report 6578322-8 (Version None)
Quarter: 2010Q1

REPORT INFORMATION
  Report Type: 
  Country: None (occurrence: None)
  Receive Date: 20100211
  Receipt Date: 20100201
  Transmission Date: 20100710
  Serious: Yes (Other)
  Sender: FDA-Public Use
  Company Number: US-GENENTECH-295658

PATIENT
  Sex: Female
  Weight: 75.8 kg

DRUGS (4)
  1. RITUXAN [Suspect]
     Indication: CENTRAL NERVOUS SYSTEM LYMPHOMA
     Dosage: UNK UNK, Q6M
     Route: 042
  2. BONIVA [Suspect]
     Indication: OSTEOPOROSIS
     Dosage: 150 MG, 1/MONTH
     Route: 048
     Dates: start: 20090901, end: 20091201
  3. GABAPENTIN [Suspect]
     Indication: CONVULSION
     Dosage: UNK
     Route: 065
  4. IBANDRONIC ACID [Concomitant]

REACTIONS (7)
  - CONVULSION [None]
  - DIZZINESS [None]
  - DYSLEXIA [None]
  - MENTAL IMPAIRMENT [None]
  - SEDATION [None]
  - SLEEP DISORDER [None]
  - WEIGHT INCREASED [None]
